FAERS Safety Report 10450823 (Version 1)
Quarter: 2014Q3

REPORT INFORMATION
  Report Type: Spontaneous
  Country: ES (occurrence: ES)
  Receive Date: 20140912
  Receipt Date: 20140912
  Transmission Date: 20150326
  Serious: Yes (Other)
  Sender: FDA-Public Use
  Company Number: PHHY2014ES112176

PATIENT
  Age: 80 Year
  Sex: Female

DRUGS (5)
  1. PANTECTA [Concomitant]
     Active Substance: PANTOPRAZOLE SODIUM
     Dosage: 40 MG, UNK
  2. PROMETAX [Suspect]
     Active Substance: RIVASTIGMINE
     Indication: PARKINSON^S DISEASE
     Dosage: 4.6 MG, DAILY
     Route: 062
     Dates: start: 2014
  3. CONDROSAN [Concomitant]
     Dosage: 400 MG, UNK
  4. LEVODOPA-CARBIDOPA [Suspect]
     Active Substance: CARBIDOPA\LEVODOPA
     Indication: PARKINSON^S DISEASE
     Dosage: UNK UKN, UNK
     Route: 048
     Dates: start: 2014
  5. LANTUS [Concomitant]
     Active Substance: INSULIN GLARGINE
     Dosage: 100 IU/ML, UNK

REACTIONS (3)
  - Depressed level of consciousness [Recovered/Resolved]
  - Somnolence [Recovered/Resolved]
  - Hypotension [Recovered/Resolved]

NARRATIVE: CASE EVENT DATE: 20140714
